FAERS Safety Report 9017790 (Version 1)
Quarter: 2013Q1

REPORT INFORMATION
  Report Type: Spontaneous
  Country: US (occurrence: US)
  Receive Date: 20130118
  Receipt Date: 20130118
  Transmission Date: 20140127
  Serious: No
  Sender: FDA-Public Use
  Company Number: US-009507513-1301USA005473

PATIENT
  Age: 49 Year
  Sex: Male
  Weight: 92.52 kg

DRUGS (10)
  1. VICTRELIS [Suspect]
     Dosage: 800 MG, Q8H
     Route: 048
  2. PEGASYS [Suspect]
  3. RIBAVIRIN [Suspect]
     Route: 048
  4. XANAX [Concomitant]
     Route: 048
  5. IRON (UNSPECIFIED) [Concomitant]
     Route: 048
  6. VITAMINS (UNSPECIFIED) [Concomitant]
     Route: 048
  7. ZOFRAN [Concomitant]
     Route: 048
  8. LEXAPRO [Concomitant]
     Route: 048
  9. AMBIEN [Concomitant]
     Route: 048
  10. TYLENOL [Concomitant]
     Route: 048

REACTIONS (3)
  - Myalgia [Unknown]
  - Rash [Unknown]
  - Influenza [Unknown]
